FAERS Safety Report 21898265 (Version 1)
Quarter: 2023Q1

REPORT INFORMATION
  Report Type: Spontaneous
  Country: US (occurrence: None)
  Receive Date: 20230122
  Receipt Date: 20230122
  Transmission Date: 20230418
  Serious: Yes (Death)
  Sender: FDA-Public Use
  Company Number: None

PATIENT
  Sex: Female
  Weight: 47.17 kg

DRUGS (7)
  1. IMATINIB MESYLATE [Suspect]
     Active Substance: IMATINIB MESYLATE
     Indication: Gastric cancer
     Dosage: FREQUENCY : DAILY;?
     Route: 048
     Dates: start: 20210923, end: 20230121
  2. DICYCLOMINE [Concomitant]
     Active Substance: DICYCLOMINE HYDROCHLORIDE
  3. DULOXETINE [Concomitant]
     Active Substance: DULOXETINE
  4. EFFEXOR [Concomitant]
     Active Substance: VENLAFAXINE HYDROCHLORIDE
  5. ACETAMINOPHEN\HYDROCODONE [Concomitant]
     Active Substance: ACETAMINOPHEN\HYDROCODONE
  6. PROCHLORPERAZINE [Concomitant]
     Active Substance: PROCHLORPERAZINE
  7. XANAX [Concomitant]
     Active Substance: ALPRAZOLAM

REACTIONS (1)
  - Death [None]
